FAERS Safety Report 8610612-7 (Version None)
Quarter: 2012Q3

REPORT INFORMATION
  Report Type: 
  Country: None (occurrence: None)
  Receive Date: 20120808
  Receipt Date: 20120724
  Transmission Date: 20120928
  Serious: Yes (Disabling)
  Sender: FDA-Public Use
  Company Number: JPI-P-019362

PATIENT
  Age: 57 Year
  Sex: Female
  Weight: 56.6996 kg

DRUGS (4)
  1. XYREM [Suspect]
     Indication: NARCOLEPSY
     Dosage: 4.5 GM (2.25 GM, 2 IN 1 D), ORAL
     Route: 048
     Dates: start: 20080411
  2. XYREM [Suspect]
     Indication: SOMNOLENCE
     Dosage: 4.5 GM (2.25 GM, 2 IN 1 D), ORAL
     Route: 048
     Dates: start: 20080411
  3. LABETALOL HYDROCHLORIDE [Concomitant]
  4. ANTIHYPERTENSIVES [Concomitant]

REACTIONS (11)
  - PYREXIA [None]
  - DEAFNESS BILATERAL [None]
  - HYPERTENSION [None]
  - AUTOIMMUNE INNER EAR DISEASE [None]
  - NERVE INJURY [None]
  - INSOMNIA [None]
  - FATIGUE [None]
  - VISION BLURRED [None]
  - DIZZINESS [None]
  - INFLUENZA LIKE ILLNESS [None]
  - TINNITUS [None]
